FAERS Safety Report 5589793-8 (Version None)
Quarter: 2008Q1

REPORT INFORMATION
  Report Type: 
  Country: None (occurrence: None)
  Receive Date: 20080110
  Receipt Date: 20080110
  Transmission Date: 20080703
  Serious: Yes (Hospitalization)
  Sender: FDA-Public Use
  Company Number: None

PATIENT
  Age: 63 Year
  Sex: Female

DRUGS (1)
  1. PREGABALIN 75MG [Suspect]
     Indication: PAIN
     Dosage: 75MG QD X 7D THEN BID PO 75MG X 7D; 75MG BID X 5D
     Route: 048

REACTIONS (3)
  - CONFUSIONAL STATE [None]
  - RENAL FAILURE ACUTE [None]
  - SOMNOLENCE [None]
